FAERS Safety Report 9740440 (Version 1)
Quarter: 2013Q4

REPORT INFORMATION
  Report Type: Spontaneous
  Country: AU (occurrence: AU)
  Receive Date: 20131209
  Receipt Date: 20131209
  Transmission Date: 20140711
  Serious: Yes (Other)
  Sender: FDA-Public Use
  Company Number: AU-ABBVIE-13P-008-1174559-00

PATIENT
  Sex: Female

DRUGS (4)
  1. HUMIRA [Suspect]
     Indication: CROHN^S DISEASE
     Route: 058
     Dates: start: 201111, end: 20131127
  2. HUMIRA [Suspect]
     Indication: INTESTINAL FISTULA
  3. SALOFALK [Concomitant]
     Indication: COLITIS ULCERATIVE
     Route: 048
     Dates: start: 201212
  4. SALOFALK [Concomitant]
     Indication: COLITIS ULCERATIVE
     Dosage: 4G/60ML  1 AT NIGHT
     Route: 054
     Dates: start: 201301, end: 201311

REACTIONS (2)
  - Gestational diabetes [Recovered/Resolved]
  - Cholestasis of pregnancy [Not Recovered/Not Resolved]
